FAERS Safety Report 19012636 (Version 1)
Quarter: 2021Q1

REPORT INFORMATION
  Report Type: Spontaneous
  Country: US (occurrence: US)
  Receive Date: 20210316
  Receipt Date: 20210316
  Transmission Date: 20210420
  Serious: Yes (Other)
  Sender: FDA-Public Use
  Company Number: None

PATIENT
  Age: 60 Year
  Sex: Male
  Weight: 81 kg

DRUGS (1)
  1. COLGATE PEROXYL [Suspect]
     Active Substance: HYDROGEN PEROXIDE
     Indication: ORAL HERPES
     Dosage: ?          QUANTITY:1 SMALL QUANTITY;?
     Route: 048
     Dates: start: 20210310, end: 20210316

REACTIONS (2)
  - Loss of personal independence in daily activities [None]
  - Disturbance in attention [None]

NARRATIVE: CASE EVENT DATE: 20210316
